FAERS Safety Report 8088700-6 (Version None)
Quarter: 2012Q1

REPORT INFORMATION
  Report Type: 
  Country: None (occurrence: None)
  Receive Date: 20120128
  Receipt Date: 20110413
  Transmission Date: 20120608
  Serious: No
  Sender: FDA-Public Use
  Company Number: US-ABBOTT-11P-163-0718643-00

PATIENT
  Sex: Male
  Weight: 68.1 kg

DRUGS (2)
  1. HUMIRA [Suspect]
     Indication: CROHN'S DISEASE
     Route: 058
  2. ENALAPRIL [Concomitant]
     Indication: HYPERTENSION
     Route: 048

REACTIONS (4)
  - ACCIDENTAL OVERDOSE [None]
  - DRUG ADMINISTRATION ERROR [None]
  - OROPHARYNGEAL PAIN [None]
  - PYREXIA [None]
